FAERS Safety Report 7648576-5 (Version None)
Quarter: 2011Q3

REPORT INFORMATION
  Report Type: 
  Country: None (occurrence: None)
  Receive Date: 20110801
  Receipt Date: 20110729
  Transmission Date: 20111222
  Serious: No
  Sender: FDA-Public Use
  Company Number: US-PFIZER INC-2011173587

PATIENT
  Sex: Female
  Weight: 45 kg

DRUGS (5)
  1. LIPITOR [Suspect]
     Indication: BLOOD CHOLESTEROL INCREASED
     Dosage: 40 MG, 1X/DAY
     Route: 048
  2. BIOTIN [Concomitant]
     Dosage: 2500 UG, UNK
  3. ALDACTONE [Concomitant]
     Dosage: UNK
  4. VITAMIN D [Concomitant]
     Dosage: 2000 MG, 1X/DAY
  5. CALCIUM [Concomitant]
     Dosage: 1500 MG, 1X/DAY

REACTIONS (1)
  - ALOPECIA [None]
